FAERS Safety Report 23088368 (Version 1)
Quarter: 2023Q4

REPORT INFORMATION
  Report Type: Spontaneous
  Country: US (occurrence: None)
  Receive Date: 20231020
  Receipt Date: 20231020
  Transmission Date: 20240110
  Serious: Yes (Hospitalization)
  Sender: FDA-Public Use
  Company Number: 2023A235460

PATIENT
  Age: 44 Year
  Sex: Female

DRUGS (3)
  1. XIGDUO XR [Suspect]
     Active Substance: DAPAGLIFLOZIN PROPANEDIOL\METFORMIN HYDROCHLORIDE
     Indication: Type 2 diabetes mellitus
     Route: 048
     Dates: start: 2018
  2. GYMNEMA TEA [Concomitant]
  3. VERVAIN HERB [Concomitant]

REACTIONS (3)
  - Localised infection [Unknown]
  - Osteitis [Unknown]
  - Oxygen saturation abnormal [Unknown]
